FAERS Safety Report 20832832 (Version 3)
Quarter: 2022Q3

REPORT INFORMATION
  Report Type: Report from Study
  Country: CN (occurrence: None)
  Receive Date: 20220516
  Receipt Date: 20220708
  Transmission Date: 20221026
  Serious: Yes (Hospitalization)
  Sender: FDA-Public Use
  Company Number: CN-ROCHE-2717349

PATIENT
  Age: 48 Year
  Sex: Female
  Weight: 58 kg

DRUGS (18)
  1. ATEZOLIZUMAB [Suspect]
     Active Substance: ATEZOLIZUMAB
     Indication: Triple negative breast cancer
     Dosage: DATE OF MOST RECENT DOSE OF ATEZOLIZUMAB WAS PRIOR TO AE AND SAE: 04/NOV/2020?DOSE OF LAST ATEZOLIZU
     Route: 041
     Dates: start: 20200806
  2. PACLITAXEL [Suspect]
     Active Substance: PACLITAXEL
     Indication: Triple negative breast cancer
     Dosage: DATE OF MOST RECENT DOSE OF PACLITAXEL PRIOR TO AE AND SAE: 27/OCT/2020?DOSE OF LAST PACLITAXEL ADMI
     Route: 042
     Dates: start: 20200806
  3. EPIRUBICIN [Suspect]
     Active Substance: EPIRUBICIN
     Indication: Triple negative breast cancer
     Dosage: ON 04/NOV/2020, MOST RECENT DOSE OF 138.9 MG OF EPIRUBICIN
     Route: 042
     Dates: start: 20201104
  4. CYCLOPHOSPHAMIDE [Suspect]
     Active Substance: CYCLOPHOSPHAMIDE
     Indication: Triple negative breast cancer
     Dosage: ON 04/NOV/2020, MOST RECENT DOSE OF 926 MG
     Route: 042
     Dates: start: 20201104
  5. FILGRASTIM [Suspect]
     Active Substance: FILGRASTIM
     Indication: Triple negative breast cancer
     Dosage: CYCLE 4 VISIT 1?NUMBER OF INJECTION  6
     Route: 058
     Dates: start: 20201104, end: 20201106
  6. FILGRASTIM [Suspect]
     Active Substance: FILGRASTIM
     Dosage: CYCLE 4 VISIT 2 ?NUMBER OF INJECTION  6
     Route: 058
     Dates: start: 20201122, end: 20201124
  7. FILGRASTIM [Suspect]
     Active Substance: FILGRASTIM
     Dosage: CYCLE 5 VISIT 1?NUMBER OF INJECTION  6
     Route: 058
     Dates: start: 20201206, end: 20201208
  8. FILGRASTIM [Suspect]
     Active Substance: FILGRASTIM
     Dosage: CYCLE 5 VISIT 2
     Route: 058
     Dates: start: 20201219, end: 20201221
  9. FILGRASTIM [Suspect]
     Active Substance: FILGRASTIM
     Route: 065
     Dates: start: 20201113, end: 20201115
  10. IMIPENEM [Concomitant]
     Active Substance: IMIPENEM
     Indication: Nutritional supplementation
     Dosage: 500MG FOR EVERY 8 HOURS
     Route: 042
     Dates: start: 20201114, end: 20201115
  11. CILASTATIN SODIUM [Concomitant]
     Active Substance: CILASTATIN SODIUM
     Dosage: 500MG FOR EVERY 8 HOURS
     Dates: start: 20201114, end: 20201115
  12. POTASSIUM CHLORIDE [Concomitant]
     Active Substance: POTASSIUM CHLORIDE
     Dates: start: 20201114, end: 20201114
  13. HEPARIN SODIUM [Concomitant]
     Active Substance: HEPARIN SODIUM
     Dosage: 12,5000 UNITS
     Route: 040
     Dates: start: 20201114, end: 20201115
  14. LEVOFLOXACIN [Concomitant]
     Active Substance: LEVOFLOXACIN
     Dates: start: 20201116, end: 20201119
  15. GRANULOCYTE COLONY-STIMULATING FACTOR NOS [Concomitant]
     Active Substance: GRANULOCYTE COLONY-STIMULATING FACTOR NOS
     Dates: start: 20201113, end: 20201115
  16. IMIPENEM AND CILASTATIN SODIUM [Concomitant]
     Active Substance: CILASTATIN SODIUM\IMIPENEM
     Dates: start: 20201114, end: 20201115
  17. DEXTROSE\SODIUM CHLORIDE [Concomitant]
     Active Substance: DEXTROSE\SODIUM CHLORIDE
     Dates: start: 20201114, end: 20201114
  18. POTASSIUM CHLORIDE [Concomitant]
     Active Substance: POTASSIUM CHLORIDE
     Dates: start: 20201114, end: 20201114

REACTIONS (1)
  - Neutrophil count decreased [Recovered/Resolved]

NARRATIVE: CASE EVENT DATE: 20201113
